FAERS Safety Report 4395384-7 (Version None)
Quarter: 2004Q3

REPORT INFORMATION
  Report Type: 
  Country: None (occurrence: None)
  Receive Date: 20040712
  Receipt Date: 20040712
  Transmission Date: 20050211
  Serious: Yes (Other)
  Sender: FDA-Public Use
  Company Number: None

PATIENT
  Age: 58 Year
  Sex: Female
  Weight: 93.441 kg

DRUGS (2)
  1. BUDEPRION SR 150 MG [Suspect]
     Indication: DEPRESSION
     Dosage: 150 MG TWICE DAIL ORAL
     Route: 048
     Dates: start: 20040602, end: 20040608
  2. BUDEPRION SR 150 MG [Suspect]
     Indication: DEPRESSION
     Dosage: 150 MG TWICE DAIL ORAL
     Route: 048
     Dates: start: 20040704, end: 20040711

REACTIONS (6)
  - DEPRESSION [None]
  - FATIGUE [None]
  - HEADACHE [None]
  - NAUSEA [None]
  - PHARMACEUTICAL PRODUCT COMPLAINT [None]
  - SOMNOLENCE [None]
